FAERS Safety Report 15828851 (Version 1)
Quarter: 2019Q1

REPORT INFORMATION
  Report Type: Spontaneous
  Country: US (occurrence: US)
  Receive Date: 20190115
  Receipt Date: 20190115
  Transmission Date: 20190417
  Serious: No
  Sender: FDA-Public Use
  Company Number: US-ALLERGAN-1756070US

PATIENT
  Age: 74 Year
  Sex: Male
  Weight: 70.3 kg

DRUGS (6)
  1. RESTASIS [Suspect]
     Active Substance: CYCLOSPORINE
     Dosage: 2 GTT, BID
     Route: 047
     Dates: start: 20170908
  2. MYRBETRIQ [Concomitant]
     Active Substance: MIRABEGRON
     Route: 048
  3. RESTASIS [Suspect]
     Active Substance: CYCLOSPORINE
     Dosage: 2 GTT, BID
     Route: 047
     Dates: start: 20170908
  4. MELOXICAM. [Concomitant]
     Active Substance: MELOXICAM
     Indication: ARTHRITIS
     Route: 048
  5. RESTASIS [Suspect]
     Active Substance: CYCLOSPORINE
     Indication: DRY EYE
     Dosage: 2 GTT, BID
     Route: 047
     Dates: start: 20170908
  6. ATORVASTATIN [Concomitant]
     Active Substance: ATORVASTATIN
     Route: 048

REACTIONS (5)
  - Product dose omission [Unknown]
  - Incorrect dose administered [Unknown]
  - Product complaint [Unknown]
  - Product packaging quantity issue [Unknown]
  - Product dropper issue [Unknown]
